FAERS Safety Report 26020579 (Version 1)
Quarter: 2025Q4

REPORT INFORMATION
  Report Type: Spontaneous
  Country: US (occurrence: US)
  Receive Date: 20251110
  Receipt Date: 20251110
  Transmission Date: 20260117
  Serious: No
  Sender: Kenvue
  Company Number: US-KENVUE-20251101969

PATIENT
  Age: 81 Year
  Sex: Female

DRUGS (1)
  1. MENS ROGAINE EXTRA STRENGTH [Suspect]
     Active Substance: MINOXIDIL
     Indication: Alopecia
     Dosage: APPROX. 2 YEARS AGO, INCH AND HALF IN THE CAP APPROX. 2 - 3 TIMES A WEEK
     Route: 061
     Dates: start: 2023

REACTIONS (3)
  - Hair growth abnormal [Recovering/Resolving]
  - Product use issue [Unknown]
  - Intentional product misuse [Unknown]

NARRATIVE: CASE EVENT DATE: 20230101
